FAERS Safety Report 7937706-3 (Version None)
Quarter: 2011Q4

REPORT INFORMATION
  Report Type: 
  Country: None (occurrence: None)
  Receive Date: 20111123
  Receipt Date: 20111116
  Transmission Date: 20120403
  Serious: No
  Sender: FDA-Public Use
  Company Number: JP-GLAXOSMITHKLINE-B0757118A

PATIENT
  Age: 26 Year
  Sex: Female

DRUGS (3)
  1. LAMICTAL [Suspect]
     Dosage: 25MG PER DAY
     Route: 048
     Dates: start: 20111005, end: 20111015
  2. VALPROATE SODIUM [Concomitant]
     Dosage: 400MG PER DAY
     Route: 048
  3. LAMICTAL [Suspect]
     Indication: BIPOLAR DISORDER
     Dosage: 25MG ALTERNATE DAYS
     Route: 048
     Dates: start: 20110920, end: 20111004

REACTIONS (4)
  - LIP PAIN [None]
  - PRURITUS [None]
  - GENERALISED ERYTHEMA [None]
  - LIP PRURITUS [None]
